FAERS Safety Report 24201750 (Version 1)
Quarter: 2024Q3

REPORT INFORMATION
  Report Type: Spontaneous
  Country: FR (occurrence: FR)
  Receive Date: 20240812
  Receipt Date: 20240812
  Transmission Date: 20241016
  Serious: Yes (Death, Congenital Anomaly)
  Sender: MYLAN
  Company Number: None

PATIENT

DRUGS (2)
  1. METHOTREXATE [Suspect]
     Active Substance: METHOTREXATE
     Indication: Rhupus syndrome
     Dosage: 20 MILLIGRAM, QW (UP TO 4 WEEKS)
     Route: 064
  2. PLAQUENIL [Suspect]
     Active Substance: HYDROXYCHLOROQUINE SULFATE
     Indication: Rhupus syndrome
     Dosage: UNK
     Route: 064

REACTIONS (3)
  - Talipes [Fatal]
  - Hemivertebra [Fatal]
  - Foetal exposure during pregnancy [Fatal]
